FAERS Safety Report 7381038-1 (Version None)
Quarter: 2011Q1

REPORT INFORMATION
  Report Type: 
  Country: None (occurrence: None)
  Receive Date: 20110329
  Receipt Date: 20100402
  Transmission Date: 20110831
  Serious: No
  Sender: FDA-Public Use
  Company Number: US-AMGEN-KDL403625

PATIENT
  Age: 42 Year
  Sex: Male
  Weight: 46.3 kg

DRUGS (11)
  1. EPOGEN [Concomitant]
     Dosage: 6600 IU, QWK
  2. SENSIPAR [Suspect]
     Indication: HYPERPARATHYROIDISM SECONDARY
     Dosage: 30 MG, QWK
     Route: 048
     Dates: start: 20070530
  3. PARICALCITOL [Concomitant]
     Dosage: 4.5 A?G, 3 TIMES/WK
  4. VENOFER [Concomitant]
     Dosage: 100 MG, QMO
  5. DIATX [Concomitant]
     Dosage: UNK UNK, QD
     Route: 048
  6. DILTIAZEM HCL [Concomitant]
     Dosage: 360 MG, QD
     Route: 048
  7. FISH OIL [Concomitant]
     Dosage: UNK UNK, QD
     Route: 048
  8. FOLIC ACID [Concomitant]
     Dosage: 2 MG, QD
     Route: 048
  9. ALLOPURINOL [Concomitant]
     Dosage: 100 MG, BID
     Route: 048
  10. COLCHICINE [Concomitant]
     Dosage: .6 MG, PRN
     Route: 048
  11. TOPROL-XL [Concomitant]
     Dosage: 100 MG, BID
     Route: 048

REACTIONS (3)
  - NAUSEA [None]
  - ABDOMINAL DISCOMFORT [None]
  - VOMITING [None]
